FAERS Safety Report 7754762-6 (Version None)
Quarter: 2011Q3

REPORT INFORMATION
  Report Type: 
  Country: None (occurrence: None)
  Receive Date: 20110916
  Receipt Date: 20110908
  Transmission Date: 20111222
  Serious: Yes (Hospitalization, Other)
  Sender: FDA-Public Use
  Company Number: US-BIOGENIDEC-2010BI035360

PATIENT
  Age: 39 Year
  Sex: Female
  Weight: 109 kg

DRUGS (4)
  1. TYSABRI [Suspect]
     Route: 042
     Dates: start: 20110301, end: 20110601
  2. TYSABRI [Suspect]
     Route: 042
     Dates: start: 20090201, end: 20100801
  3. TYSABRI [Suspect]
     Indication: MULTIPLE SCLEROSIS
     Route: 042
     Dates: start: 20080307, end: 20081101
  4. GABAPENTIN [Concomitant]
     Indication: PARAESTHESIA

REACTIONS (15)
  - PLANTAR FASCIITIS [None]
  - MULTIPLE SCLEROSIS RELAPSE [None]
  - VISUAL IMPAIRMENT [None]
  - STRESS [None]
  - HAEMORRHAGE [None]
  - FIBROMYALGIA [None]
  - PAIN [None]
  - GRAND MAL CONVULSION [None]
  - PETIT MAL EPILEPSY [None]
  - INCOHERENT [None]
  - CONVULSION [None]
  - URTICARIA [None]
  - EXOSTOSIS [None]
  - HEADACHE [None]
  - HYPERSENSITIVITY [None]
